FAERS Safety Report 18417226 (Version 1)
Quarter: 2020Q4

REPORT INFORMATION
  Report Type: Spontaneous
  Country: FR (occurrence: FR)
  Receive Date: 20201022
  Receipt Date: 20201022
  Transmission Date: 20210114
  Serious: Yes (Other)
  Sender: FDA-Public Use
  Company Number: FR-BAUSCH-BL-2020-029776

PATIENT
  Age: 42 Year
  Sex: Male
  Weight: 64 kg

DRUGS (2)
  1. CLOXACILLINE [Suspect]
     Active Substance: CLOXACILLIN
     Indication: ENDOCARDITIS
     Route: 042
     Dates: start: 20160610, end: 20160709
  2. GENTAMICINE [Suspect]
     Active Substance: GENTAMICIN
     Indication: ENDOCARDITIS
     Route: 042
     Dates: start: 20160609, end: 20160609

REACTIONS (1)
  - Acute kidney injury [Recovered/Resolved]

NARRATIVE: CASE EVENT DATE: 20160610
